FAERS Safety Report 4493625-9 (Version None)
Quarter: 2004Q4

REPORT INFORMATION
  Report Type: 
  Country: None (occurrence: None)
  Receive Date: 20041102
  Receipt Date: 20041019
  Transmission Date: 20050328
  Serious: Yes (Hospitalization)
  Sender: FDA-Public Use
  Company Number: USA040773622

PATIENT
  Age: 77 Year
  Sex: Female

DRUGS (6)
  1. FORTEO [Suspect]
     Indication: OSTEOPOROSIS
     Dosage: 20 UG/1 DAY
     Dates: start: 20040501
  2. SYNTHROID [Concomitant]
  3. DITROPAN [Concomitant]
  4. DARVOCET-N 100 [Concomitant]
  5. ACIPHEX [Concomitant]
  6. MOTRIN [Concomitant]

REACTIONS (20)
  - ALANINE AMINOTRANSFERASE INCREASED [None]
  - ASPARTATE AMINOTRANSFERASE INCREASED [None]
  - ATELECTASIS [None]
  - BLOOD ALKALINE PHOSPHATASE INCREASED [None]
  - CELLULITIS [None]
  - DISEASE PROGRESSION [None]
  - DYSPEPSIA [None]
  - DYSURIA [None]
  - ECCHYMOSIS [None]
  - EFFUSION [None]
  - FALL [None]
  - HAEMOGLOBIN DECREASED [None]
  - KETONURIA [None]
  - NITRITE URINE [None]
  - OSTEOMYELITIS [None]
  - PNEUMONIA [None]
  - POLYARTHRITIS [None]
  - THORACIC VERTEBRAL FRACTURE [None]
  - URINARY TRACT INFECTION [None]
  - URINE LEUKOCYTE ESTERASE POSITIVE [None]
